FAERS Safety Report 6405803-X (Version None)
Quarter: 2009Q4

REPORT INFORMATION
  Report Type: 
  Country: None (occurrence: None)
  Receive Date: 20091019
  Receipt Date: 20091010
  Transmission Date: 20100525
  Serious: Yes (Hospitalization)
  Sender: FDA-Public Use
  Company Number: KR-BRISTOL-MYERS SQUIBB COMPANY-14783443

PATIENT
  Age: 67 Year
  Sex: Female

DRUGS (4)
  1. ABATACEPT [Suspect]
     Indication: RHEUMATOID ARTHRITIS
     Dosage: 14SEP07-25JAN08, 03MAR08-CONT.
     Route: 042
     Dates: start: 20070914
  2. METHOTREXATE [Suspect]
     Indication: RHEUMATOID ARTHRITIS
     Dates: start: 20090317
  3. FOLIC ACID [Concomitant]
     Dates: start: 20001215
  4. TRIAMCINOLONE [Concomitant]
     Dates: start: 20001215

REACTIONS (1)
  - SPINAL COLUMN STENOSIS [None]
